FAERS Safety Report 11340495 (Version 1)
Quarter: 2015Q3

REPORT INFORMATION
  Report Type: Spontaneous
  Country: US (occurrence: None)
  Receive Date: 20150803
  Receipt Date: 20150803
  Transmission Date: 20151125
  Serious: No
  Sender: FDA-Public Use
  Company Number: None

PATIENT
  Age: 57 Year
  Sex: Female

DRUGS (3)
  1. HARVONI [Suspect]
     Active Substance: LEDIPASVIR\SOFOSBUVIR
     Indication: LIVER DISORDER
     Dosage: 90-400MG?DAILY?PO?THERAPY ?07-07-2015
     Route: 048
  2. BUSPIROINE [Concomitant]
  3. TRAMADOL. [Concomitant]
     Active Substance: TRAMADOL

REACTIONS (4)
  - Rash macular [None]
  - Cyst [None]
  - Vaginal mucosal blistering [None]
  - Swelling face [None]

NARRATIVE: CASE EVENT DATE: 20150704
